FAERS Safety Report 9202459 (Version 2)
Quarter: 2013Q2

REPORT INFORMATION
  Report Type: Spontaneous
  Country: US (occurrence: US)
  Receive Date: 20130401
  Receipt Date: 20130426
  Transmission Date: 20140414
  Serious: Yes (Disabling, Other)
  Sender: FDA-Public Use
  Company Number: US-PFIZER INC-2013103966

PATIENT
  Age: 31 Year
  Sex: Female
  Weight: 129 kg

DRUGS (5)
  1. CHANTIX [Suspect]
     Indication: SMOKING CESSATION THERAPY
     Dosage: UNK, 1X/DAY
     Dates: start: 201303
  2. CHANTIX [Suspect]
     Dosage: 1 MG, 2X/DAY
     Dates: start: 20130329, end: 20130330
  3. SYMBICORT [Concomitant]
     Indication: ASTHMA
     Dosage: 2 PUFFS, 2X/DAY
  4. ALBUTEROL [Concomitant]
     Indication: ASTHMA
     Dosage: UNK, AS NEEDED
  5. NASONEX [Concomitant]
     Indication: HYPERSENSITIVITY
     Dosage: UNK, 1X/DAY

REACTIONS (6)
  - Multiple sclerosis [Unknown]
  - Optic neuritis [Unknown]
  - Migraine [Recovered/Resolved]
  - Vision blurred [Not Recovered/Not Resolved]
  - Vomiting [Recovered/Resolved]
  - Nausea [Recovered/Resolved]
